FAERS Safety Report 9739375 (Version 1)
Quarter: 2013Q4

REPORT INFORMATION
  Report Type: Spontaneous
  Country: US (occurrence: US)
  Receive Date: 20131209
  Receipt Date: 20131209
  Transmission Date: 20140711
  Serious: No
  Sender: FDA-Public Use
  Company Number: US-GLAXOSMITHKLINE-A1023076A

PATIENT
  Age: 55 Year
  Sex: Female

DRUGS (8)
  1. AVANDAMET [Suspect]
     Indication: TYPE 2 DIABETES MELLITUS
     Dosage: 1TAB TWICE PER DAY
     Route: 048
  2. LISINOPRIL [Concomitant]
  3. POTASSIUM [Concomitant]
  4. SPIRONOLACTONE [Concomitant]
  5. SYNTHROID [Concomitant]
  6. AMARYL [Concomitant]
  7. ARTHRITIS MEDICATION [Concomitant]
  8. UNSPECIFIED MEDICATION [Concomitant]
     Indication: BURSITIS

REACTIONS (5)
  - Oedema peripheral [Not Recovered/Not Resolved]
  - Dyspnoea [Unknown]
  - Arthralgia [Unknown]
  - Dyspnoea exertional [Unknown]
  - Treatment noncompliance [Unknown]
